FAERS Safety Report 10133675 (Version 2)
Quarter: 2014Q3

REPORT INFORMATION
  Report Type: Report from Study
  Country: RU (occurrence: RU)
  Receive Date: 20140428
  Receipt Date: 20140801
  Transmission Date: 20150326
  Serious: Yes (Other)
  Sender: FDA-Public Use
  Company Number: RU-ASTELLAS-2014US004114

PATIENT
  Age: 70 Year
  Sex: Male

DRUGS (1)
  1. ERLOTINIB [Suspect]
     Active Substance: ERLOTINIB
     Indication: NON-SMALL CELL LUNG CANCER
     Dosage: UNK, UNKNOWN FREQ.
     Route: 065

REACTIONS (1)
  - Tonsil cancer [Unknown]

NARRATIVE: CASE EVENT DATE: 201112
